FAERS Safety Report 9645695 (Version 4)
Quarter: 2014Q1

REPORT INFORMATION
  Report Type: Report from Study
  Country: US (occurrence: US)
  Receive Date: 20131025
  Receipt Date: 20140304
  Transmission Date: 20141002
  Serious: Yes (Life-Threatening, Hospitalization, Other)
  Sender: FDA-Public Use
  Company Number: US-JNJFOC-20110608054

PATIENT
  Age: 67 Year
  Sex: Male
  Weight: 95.3 kg

DRUGS (36)
  1. JNJ-28431754 [Suspect]
     Route: 048
  2. JNJ-28431754 [Suspect]
     Indication: TYPE 2 DIABETES MELLITUS
     Route: 048
     Dates: start: 20101006, end: 20110615
  3. ACTOS [Suspect]
     Indication: TYPE 2 DIABETES MELLITUS
     Route: 048
     Dates: start: 20110104
  4. SIMVASTATIN [Suspect]
     Indication: BLOOD CHOLESTEROL
     Route: 048
     Dates: start: 20100601, end: 20110615
  5. SIMVASTATIN [Suspect]
     Indication: BLOOD CHOLESTEROL
     Route: 048
     Dates: start: 20101101
  6. HYDROXYZINE HCL [Concomitant]
     Route: 048
     Dates: start: 20110916
  7. NITROGLYCERIN 2% [Concomitant]
     Route: 061
     Dates: start: 20110701
  8. EPIPEN [Concomitant]
     Indication: HYPERSENSITIVITY
     Route: 030
     Dates: start: 20100707
  9. LISINOPRIL [Concomitant]
     Indication: HYPERTENSION
     Route: 048
     Dates: start: 20100615
  10. LISINOPRIL [Concomitant]
     Indication: HYPERTENSION
     Route: 048
     Dates: start: 20110801
  11. LISINOPRIL [Concomitant]
     Indication: HYPERTENSION
     Route: 048
     Dates: start: 20111007
  12. CIALIS [Concomitant]
     Route: 048
     Dates: start: 20110504, end: 20120503
  13. WARFARIN [Concomitant]
     Route: 048
     Dates: start: 20111228
  14. WARFARIN [Concomitant]
     Route: 048
     Dates: start: 20110920
  15. WARFARIN [Concomitant]
     Route: 048
     Dates: start: 20110623
  16. WARFARIN [Concomitant]
     Route: 048
     Dates: start: 20100627
  17. OMEGA 3 FATTY ACID [Concomitant]
     Indication: NUTRITIONAL SUPPLEMENTATION
     Route: 048
     Dates: start: 20090701
  18. LANTUS [Concomitant]
     Route: 058
     Dates: start: 20100927
  19. LANTUS [Concomitant]
     Route: 058
     Dates: start: 20110623, end: 20120222
  20. OMEPRAZOLE [Concomitant]
     Indication: GASTROOESOPHAGEAL REFLUX DISEASE
     Route: 048
     Dates: start: 20110226, end: 20120113
  21. CARVEDILOL [Concomitant]
     Indication: HYPERTENSION
     Route: 048
     Dates: start: 20110623
  22. CARVEDILOL [Concomitant]
     Indication: HYPERTENSION
     Route: 048
     Dates: start: 20080319, end: 20110613
  23. CARVEDILOL [Concomitant]
     Indication: HYPERTENSION
     Route: 048
     Dates: start: 20110125
  24. BENEFIBER [Concomitant]
     Indication: CONSTIPATION
     Route: 048
     Dates: start: 20090614
  25. NOVOLOG [Concomitant]
     Route: 058
     Dates: start: 20110623, end: 20120119
  26. NOVOLOG [Concomitant]
     Dosage: EVENING
     Route: 058
     Dates: start: 20100811
  27. NOVOLOG [Concomitant]
     Dosage: MORNING
     Route: 058
     Dates: start: 20100811
  28. CETIRIZINE [Concomitant]
     Indication: MULTIPLE ALLERGIES
     Route: 048
     Dates: start: 20091209
  29. HYDROCHLOROTHIAZIDE [Concomitant]
     Route: 048
     Dates: start: 20110830
  30. ASPIRIN [Concomitant]
     Indication: CEREBROVASCULAR ACCIDENT PROPHYLAXIS
     Route: 048
     Dates: start: 20080908, end: 20130408
  31. ASPIRIN [Concomitant]
     Indication: ISCHAEMIC HEART DISEASE PROPHYLAXIS
     Route: 048
     Dates: start: 20080908, end: 20130408
  32. LOSARTAN [Concomitant]
     Route: 048
     Dates: start: 20111201, end: 20120126
  33. METOPROLOL [Concomitant]
     Route: 048
     Dates: start: 20111201, end: 20120116
  34. CHOLESTYRAMINE [Concomitant]
     Route: 048
     Dates: start: 20111007, end: 20120703
  35. DOXEPIN [Concomitant]
     Route: 048
     Dates: start: 20110916, end: 20120423
  36. LISINOPRIL/HYDROCHLOROTHIAZIDE [Concomitant]
     Indication: HYPERTENSION
     Route: 048
     Dates: start: 20081030, end: 20110615

REACTIONS (8)
  - Drug-induced liver injury [Recovering/Resolving]
  - Renal failure [Recovering/Resolving]
  - Hepatic enzyme abnormal [Recovering/Resolving]
  - Biliary tract disorder [Recovering/Resolving]
  - Cholangitis sclerosing [Recovering/Resolving]
  - Hepatitis cholestatic [Recovering/Resolving]
  - Ascites [Recovering/Resolving]
  - Varices oesophageal [Recovering/Resolving]
